FAERS Safety Report 18800214 (Version 1)
Quarter: 2021Q1

REPORT INFORMATION
  Report Type: Spontaneous
  Country: US (occurrence: US)
  Receive Date: 20210128
  Receipt Date: 20210128
  Transmission Date: 20210419
  Serious: Yes (Death)
  Sender: FDA-Public Use
  Company Number: None

PATIENT
  Age: 85 Year
  Sex: Male

DRUGS (1)
  1. SPRYCEL [Suspect]
     Active Substance: DASATINIB
     Route: 048
     Dates: start: 202010, end: 20210125

REACTIONS (4)
  - Renal failure [None]
  - Confusional state [None]
  - Laboratory test abnormal [None]
  - Agitation [None]

NARRATIVE: CASE EVENT DATE: 20210120
